FAERS Safety Report 5697704-X (Version None)
Quarter: 2008Q2

REPORT INFORMATION
  Report Type: 
  Country: None (occurrence: None)
  Receive Date: 20080408
  Receipt Date: 20080401
  Transmission Date: 20081010
  Serious: Yes (Other)
  Sender: FDA-Public Use
  Company Number: B0413914A

PATIENT
  Age: 47 Year
  Sex: Female

DRUGS (3)
  1. SEROXAT [Suspect]
     Route: 065
     Dates: start: 19970717
  2. SEROXAT [Suspect]
     Route: 048
  3. ZISPIN [Concomitant]
     Dates: start: 20040305

REACTIONS (13)
  - ABNORMAL DREAMS [None]
  - ADVERSE EVENT [None]
  - AGGRESSION [None]
  - BALANCE DISORDER [None]
  - BLOOD ALKALINE PHOSPHATASE INCREASED [None]
  - DRUG WITHDRAWAL SYNDROME [None]
  - HYPERVENTILATION [None]
  - HYPOAESTHESIA [None]
  - MALAISE [None]
  - MUSCULAR WEAKNESS [None]
  - PANIC REACTION [None]
  - PERSONALITY CHANGE [None]
  - WEIGHT INCREASED [None]
